FAERS Safety Report 6440491-8 (Version None)
Quarter: 2009Q4

REPORT INFORMATION
  Report Type: 
  Country: None (occurrence: None)
  Receive Date: 20091113
  Receipt Date: 20091102
  Transmission Date: 20100525
  Serious: Yes (Death, Other)
  Sender: FDA-Public Use
  Company Number: CL-GENENTECH-293652

PATIENT

DRUGS (3)
  1. MABTHERA [Suspect]
     Indication: EPSTEIN-BARR VIRUS ASSOCIATED LYMPHOPROLIFERATIVE DISORDER
     Route: 065
  2. GANCICLOVIR SODIUM [Suspect]
     Indication: CYTOMEGALOVIRUS INFECTION
     Route: 042
  3. MYCOPHENOLIC ACID [Suspect]
     Indication: PROPHYLAXIS AGAINST TRANSPLANT REJECTION
     Route: 065

REACTIONS (3)
  - CYTOMEGALOVIRUS INFECTION [None]
  - DEATH [None]
  - TRANSPLANT REJECTION [None]
